FAERS Safety Report 7192006-7 (Version None)
Quarter: 2010Q4

REPORT INFORMATION
  Report Type: 
  Country: None (occurrence: None)
  Receive Date: 20101223
  Receipt Date: 20101220
  Transmission Date: 20110411
  Serious: Yes (Death)
  Sender: FDA-Public Use
  Company Number: PHHY2010BR86924

PATIENT
  Age: 80 Year
  Sex: Male

DRUGS (1)
  1. FORASEQ [Suspect]
     Indication: EMPHYSEMA
     Dosage: 12/400 MCG, 60/60, QD
     Dates: start: 20101215

REACTIONS (1)
  - DEATH [None]
